FAERS Safety Report 6228581-6 (Version None)
Quarter: 2009Q2

REPORT INFORMATION
  Report Type: 
  Country: None (occurrence: None)
  Receive Date: 20090612
  Receipt Date: 20090603
  Transmission Date: 20091009
  Serious: Yes (Other)
  Sender: FDA-Public Use
  Company Number: JP-SANOFI-SYNTHELABO-A01200905433

PATIENT
  Age: 60 Year
  Sex: Female

DRUGS (8)
  1. TOLEDOMIN [Concomitant]
     Indication: DEPRESSION
     Dosage: UNK
     Route: 048
  2. RESLIN [Concomitant]
     Indication: DRUG USE FOR UNKNOWN INDICATION
     Dosage: UNK
     Route: 048
  3. LORAMET [Concomitant]
     Indication: DRUG USE FOR UNKNOWN INDICATION
     Dosage: UNK
     Route: 048
  4. WYPAX [Concomitant]
     Indication: DEPRESSION
     Dosage: UNK
     Route: 048
  5. MYSLEE [Suspect]
     Indication: DRUG USE FOR UNKNOWN INDICATION
     Dosage: 5 MG
     Route: 048
     Dates: start: 20090301
  6. SEROQUEL [Suspect]
     Indication: ANXIETY DISORDER
     Dosage: 50 MG
     Route: 048
     Dates: start: 20090425
  7. SEROQUEL [Suspect]
     Dosage: 25 MG
     Route: 048
     Dates: end: 20090508
  8. SEROQUEL [Suspect]
     Dosage: 12.5 MG
     Route: 048
     Dates: start: 20090509

REACTIONS (2)
  - CATARACT [None]
  - SOMNOLENCE [None]
